FAERS Safety Report 16463097 (Version 4)
Quarter: 2019Q3

REPORT INFORMATION
  Report Type: Report from Study
  Country: US (occurrence: US)
  Receive Date: 20190621
  Receipt Date: 20190910
  Transmission Date: 20191004
  Serious: Yes (Hospitalization, Other)
  Sender: FDA-Public Use
  Company Number: US-GILEAD-2019-0414622

PATIENT
  Sex: Male

DRUGS (12)
  1. MYFORTIC [Suspect]
     Active Substance: MYCOPHENOLATE SODIUM
     Indication: PRODUCT USED FOR UNKNOWN INDICATION
     Route: 065
  2. VANCOMYCIN [Concomitant]
     Active Substance: VANCOMYCIN
  3. TACROLIMUS. [Concomitant]
     Active Substance: TACROLIMUS
  4. VALGANCICLOVIR. [Concomitant]
     Active Substance: VALGANCICLOVIR
  5. ASA [Concomitant]
     Active Substance: ASPIRIN
  6. CALCIUM CARBONATE. [Concomitant]
     Active Substance: CALCIUM CARBONATE
  7. AZATHIOPRINE. [Concomitant]
     Active Substance: AZATHIOPRINE
  8. SOFOSBUVIR W/VELPATASVIR [Suspect]
     Active Substance: SOFOSBUVIR\VELPATASVIR
     Indication: HEPATITIS C
     Dosage: UNK
     Route: 065
  9. CEFEPIME [Concomitant]
     Active Substance: CEFEPIME HYDROCHLORIDE
  10. NYSTATIN. [Concomitant]
     Active Substance: NYSTATIN
  11. ATOVAQUONE. [Concomitant]
     Active Substance: ATOVAQUONE
  12. PREDNISONE. [Concomitant]
     Active Substance: PREDNISONE

REACTIONS (13)
  - Testicular swelling [Unknown]
  - Diarrhoea [Recovered/Resolved]
  - Hypotension [Unknown]
  - Mediastinitis [Unknown]
  - Metabolic acidosis [Recovered/Resolved]
  - Acute kidney injury [Unknown]
  - Serratia test positive [Unknown]
  - Toxicity to various agents [Unknown]
  - Diarrhoea [Recovering/Resolving]
  - Orchitis [Unknown]
  - Vomiting [Unknown]
  - Bacteraemia [Unknown]
  - Malaise [Unknown]

NARRATIVE: CASE EVENT DATE: 20190611
